FAERS Safety Report 23768786 (Version 1)
Quarter: 2024Q2

REPORT INFORMATION
  Report Type: Spontaneous
  Country: US (occurrence: None)
  Receive Date: 20240420
  Receipt Date: 20240420
  Transmission Date: 20240716
  Serious: Yes (Death)
  Sender: FDA-Public Use
  Company Number: None

PATIENT
  Age: 81 Year
  Sex: Male

DRUGS (1)
  1. PRALUENT [Suspect]
     Active Substance: ALIROCUMAB
     Indication: Hypercholesterolaemia
     Dosage: OTHER QUANTITY : 75MG/1ML;?FREQUENCY : EVERY OTHER WEEK;?
     Route: 058
     Dates: start: 20220405, end: 20240212

REACTIONS (2)
  - Brain neoplasm [None]
  - Dementia [None]

NARRATIVE: CASE EVENT DATE: 20240214
